FAERS Safety Report 24394951 (Version 2)
Quarter: 2024Q4

REPORT INFORMATION
  Report Type: Spontaneous
  Country: CA (occurrence: CA)
  Receive Date: 20241004
  Receipt Date: 20241130
  Transmission Date: 20250114
  Serious: Yes (Other)
  Sender: CELLTRION
  Company Number: CA-PFIZER INC-PV202400126160

PATIENT

DRUGS (3)
  1. INFLECTRA [Suspect]
     Active Substance: INFLIXIMAB-DYYB
     Indication: Crohn^s disease
     Dosage: 10 MG/KG FREQUENCY: 8 WEEKS
     Route: 042
     Dates: start: 20240813
  2. INFLECTRA [Suspect]
     Active Substance: INFLIXIMAB-DYYB
     Dosage: 10 MG/KG FREQUENCY: 8 WEEKS
     Route: 042
     Dates: start: 20240925
  3. INFLECTRA [Suspect]
     Active Substance: INFLIXIMAB-DYYB
     Dosage: 5 MG/KG FREQUENCY: 8 WEEKS
     Route: 042
     Dates: start: 20241120

REACTIONS (4)
  - Gastrointestinal stoma complication [Unknown]
  - Abdominal pain [Unknown]
  - Proctalgia [Unknown]
  - Condition aggravated [Unknown]

NARRATIVE: CASE EVENT DATE: 20240101
